FAERS Safety Report 12446917 (Version 1)
Quarter: 2016Q2

REPORT INFORMATION
  Report Type: Spontaneous
  Country: US (occurrence: US)
  Receive Date: 20160608
  Receipt Date: 20160608
  Transmission Date: 20160815
  Serious: No
  Sender: FDA-Public Use
  Company Number: US-ASTRAZENECA-2016SE58137

PATIENT
  Sex: Male

DRUGS (9)
  1. LOSARTAN. [Concomitant]
     Active Substance: LOSARTAN
  2. LEXAPRO [Concomitant]
     Active Substance: ESCITALOPRAM OXALATE
  3. FINASTERIDE. [Concomitant]
     Active Substance: FINASTERIDE
  4. RAPAFLO [Concomitant]
     Active Substance: SILODOSIN
  5. TAGRISSO [Suspect]
     Active Substance: OSIMERTINIB
     Indication: LUNG NEOPLASM MALIGNANT
     Route: 048
     Dates: start: 20160511
  6. MORPHINE [Concomitant]
     Active Substance: MORPHINE
  7. PLAVIX [Concomitant]
     Active Substance: CLOPIDOGREL BISULFATE
  8. MUCINEX [Concomitant]
     Active Substance: GUAIFENESIN
  9. GABAPENTIN. [Concomitant]
     Active Substance: GABAPENTIN

REACTIONS (4)
  - Prostatic disorder [Unknown]
  - Peripheral swelling [Unknown]
  - Fatigue [Unknown]
  - Pollakiuria [Unknown]
